FAERS Safety Report 6198988-4 (Version None)
Quarter: 2009Q2

REPORT INFORMATION
  Report Type: 
  Country: None (occurrence: None)
  Receive Date: 20090522
  Receipt Date: 20090515
  Transmission Date: 20091009
  Serious: Yes (Disabling, Other)
  Sender: FDA-Public Use
  Company Number: US-ELI_LILLY_AND_COMPANY-US200905003578

PATIENT
  Sex: Female

DRUGS (1)
  1. HUMATROPE [Suspect]
     Dosage: UNK, UNKNOWN
     Dates: start: 20070101

REACTIONS (4)
  - BONE DISORDER [None]
  - DISABILITY [None]
  - MENOPAUSE [None]
  - PITUITARY TUMOUR [None]
